FAERS Safety Report 15098580 (Version 2)
Quarter: 2018Q3

REPORT INFORMATION
  Report Type: Spontaneous
  Country: US (occurrence: US)
  Receive Date: 20180702
  Receipt Date: 20180705
  Transmission Date: 20181010
  Serious: No
  Sender: FDA-Public Use
  Company Number: PHEH2018US018348

PATIENT

DRUGS (3)
  1. LAMOTRIGINE. [Suspect]
     Active Substance: LAMOTRIGINE
     Indication: MIXED ANXIETY AND DEPRESSIVE DISORDER
     Dosage: 25 MG, QHS
     Route: 065
  2. QUETIAPINE. [Suspect]
     Active Substance: QUETIAPINE
     Indication: MIXED ANXIETY AND DEPRESSIVE DISORDER
     Dosage: 150 MG, QD
     Route: 065
  3. BUPROPION HCI TABLETS EXTENDED?RELEASE [Suspect]
     Active Substance: BUPROPION HYDROCHLORIDE
     Indication: MIXED ANXIETY AND DEPRESSIVE DISORDER
     Dosage: 200 MG, QD
     Route: 065

REACTIONS (1)
  - Disease recurrence [Recovering/Resolving]
